FAERS Safety Report 4526043-5 (Version None)
Quarter: 2004Q4

REPORT INFORMATION
  Report Type: 
  Country: None (occurrence: None)
  Receive Date: 20041129
  Receipt Date: 20040819
  Transmission Date: 20050328
  Serious: Yes (Hospitalization)
  Sender: FDA-Public Use
  Company Number: USA040876180

PATIENT
  Age: 25 Year
  Sex: Male

DRUGS (1)
  1. ZYPREXA [Suspect]
     Dosage: 10 MG/3 DAY

REACTIONS (3)
  - INTENTIONAL SELF-INJURY [None]
  - PANCREATITIS [None]
  - PRESCRIBED OVERDOSE [None]
